FAERS Safety Report 4429258-X (Version None)
Quarter: 2004Q3

REPORT INFORMATION
  Report Type: 
  Country: None (occurrence: None)
  Receive Date: 20040819
  Receipt Date: 20030128
  Transmission Date: 20050211
  Serious: Yes (Other)
  Sender: FDA-Public Use
  Company Number: US-BRISTOL-MYERS SQUIBB COMPANY-12169801

PATIENT
  Age: 53 Year
  Sex: Male

DRUGS (4)
  1. STADOL [Suspect]
     Indication: MIGRAINE
     Route: 045
     Dates: start: 19930401, end: 19980501
  2. LORTAB [Concomitant]
  3. VALIUM [Concomitant]
  4. SYNTHROID [Concomitant]

REACTIONS (2)
  - DEPENDENCE [None]
  - MYOCARDIAL INFARCTION [None]
